FAERS Safety Report 10270558 (Version 2)
Quarter: 2014Q3

REPORT INFORMATION
  Report Type: Spontaneous
  Country: US (occurrence: US)
  Receive Date: 20140701
  Receipt Date: 20140724
  Transmission Date: 20150326
  Serious: Yes (Other)
  Sender: FDA-Public Use
  Company Number: US-SA-2014SA083230

PATIENT
  Age: 71 Year
  Sex: Male

DRUGS (3)
  1. HUMALOG [Concomitant]
     Active Substance: INSULIN LISPRO
  2. SOLOSTAR [Concomitant]
     Active Substance: DEVICE
     Indication: DIABETES MELLITUS
     Dates: start: 2009
  3. LANTUS SOLOSTAR [Suspect]
     Active Substance: INSULIN GLARGINE
     Indication: DIABETES MELLITUS
     Dosage: 70 U AM?30 U PM
     Route: 065
     Dates: start: 2009

REACTIONS (7)
  - Hip arthroplasty [Unknown]
  - Visual acuity reduced [Unknown]
  - Road traffic accident [Unknown]
  - Drug ineffective [Unknown]
  - Blood glucose increased [Unknown]
  - Drug administration error [Unknown]
  - Ear injury [Unknown]

NARRATIVE: CASE EVENT DATE: 201309
